FAERS Safety Report 7327451-X (Version None)
Quarter: 2011Q1

REPORT INFORMATION
  Report Type: 
  Country: None (occurrence: None)
  Receive Date: 20110303
  Receipt Date: 20110223
  Transmission Date: 20110831
  Serious: Yes (Other)
  Sender: FDA-Public Use
  Company Number: US-ASTRAZENECA-2007UW02038

PATIENT
  Age: 14431 Day
  Sex: Female

DRUGS (18)
  1. LAMICTAL [Concomitant]
     Dates: start: 20040331
  2. SEROQUEL [Suspect]
     Dosage: 100 MG 3 AT MORNING AND 2 AT NIGHT
     Route: 048
     Dates: start: 20041021
  3. ABILIFY [Concomitant]
     Dates: start: 20050301
  4. XANAX [Concomitant]
     Dates: start: 19991027
  5. AVANDAMET [Concomitant]
     Dates: start: 20050110
  6. INSULIN [Concomitant]
  7. SEROQUEL [Suspect]
     Indication: BIPOLAR DISORDER
     Route: 048
     Dates: start: 20030605, end: 20031002
  8. SEROQUEL [Suspect]
     Dosage: 100 MG 3 AT MORNING AND 2 AT NIGHT
     Route: 048
     Dates: start: 20041021
  9. PAXIL [Concomitant]
     Dates: start: 19991115, end: 20040521
  10. ACIPHEX [Concomitant]
     Dates: start: 20040101
  11. SEROQUEL [Suspect]
     Route: 048
     Dates: start: 20031002, end: 20050305
  12. AVANDIA [Concomitant]
     Dates: start: 20040826
  13. SEROQUEL [Suspect]
     Indication: BIPOLAR I DISORDER
     Route: 048
     Dates: start: 20030605, end: 20031002
  14. PAXIL [Concomitant]
     Route: 048
     Dates: start: 20010723
  15. SEROQUEL [Suspect]
     Route: 048
     Dates: start: 20031002, end: 20050305
  16. XANAX [Concomitant]
     Dosage: 1 MG TO 2 MG
     Route: 048
     Dates: start: 20010723
  17. METFORMIN [Concomitant]
     Dates: start: 20050110
  18. PRILOSEC [Concomitant]
     Dates: start: 20050110

REACTIONS (3)
  - TYPE 2 DIABETES MELLITUS [None]
  - HYPOAESTHESIA FACIAL [None]
  - MONONEURITIS [None]
